FAERS Safety Report 9837718 (Version 2)
Quarter: 2014Q1

REPORT INFORMATION
  Report Type: Spontaneous
  Country: JP (occurrence: JP)
  Receive Date: 20140123
  Receipt Date: 20140313
  Transmission Date: 20141002
  Serious: Yes (Death, Other)
  Sender: FDA-Public Use
  Company Number: JP-ASTELLAS-2014US000677

PATIENT
  Age: 76 Year
  Sex: Female

DRUGS (3)
  1. TARCEVA [Suspect]
     Indication: LUNG ADENOCARCINOMA METASTATIC
     Dosage: 50 MG, UID/QD
     Route: 048
     Dates: start: 20130627, end: 20130627
  2. TARCEVA [Suspect]
     Dosage: 75 MG, UID/QD
     Route: 048
     Dates: start: 20130621, end: 20130626
  3. ZOMETA [Suspect]
     Indication: PRODUCT USED FOR UNKNOWN INDICATION
     Dosage: UNK
     Route: 041

REACTIONS (3)
  - Incorrect dose administered [Unknown]
  - Henoch-Schonlein purpura [Not Recovered/Not Resolved]
  - Pneumocystis jirovecii pneumonia [Fatal]
